FAERS Safety Report 4289362-6 (Version None)
Quarter: 2004Q1

REPORT INFORMATION
  Report Type: 
  Country: None (occurrence: None)
  Receive Date: 20040203
  Receipt Date: 20030708
  Transmission Date: 20041129
  Serious: Yes (Other)
  Sender: FDA-Public Use
  Company Number: 200320306BWH

PATIENT
  Age: 49 Year
  Sex: Female
  Weight: 65.318 kg

DRUGS (1)
  1. AVELOX [Suspect]
     Indication: UPPER RESPIRATORY TRACT INFECTION
     Dosage: 400 MG, QD, ORAL
     Route: 048
     Dates: start: 20030626, end: 20030628

REACTIONS (2)
  - CHEST PAIN [None]
  - INSOMNIA [None]
